FAERS Safety Report 14912357 (Version 1)
Quarter: 2018Q2

REPORT INFORMATION
  Report Type: Spontaneous
  Country: US (occurrence: US)
  Receive Date: 20180501
  Receipt Date: 20180501
  Transmission Date: 20180711
  Serious: Yes (Death)
  Sender: FDA-Public Use
  Company Number: None

PATIENT
  Age: 51 Year
  Sex: Male
  Weight: 144 kg

DRUGS (3)
  1. NO DRUG NAME [Concomitant]
  2. PEMBROLIZUMAB. [Suspect]
     Active Substance: PEMBROLIZUMAB
  3. AZACITIDINE. [Suspect]
     Active Substance: AZACITIDINE

REACTIONS (7)
  - Pyrexia [None]
  - Acute myeloid leukaemia [None]
  - Dyspnoea [None]
  - Tachypnoea [None]
  - Pneumonia fungal [None]
  - Depressed level of consciousness [None]
  - General physical health deterioration [None]

NARRATIVE: CASE EVENT DATE: 20180429
